FAERS Safety Report 7284422 (Version 6)
Quarter: 2013Q4

REPORT INFORMATION
  Report Type: Spontaneous
  Country: US (occurrence: US)
  Receive Date: 20100218
  Receipt Date: 20131227
  Transmission Date: 20140711
  Serious: Yes (Other)
  Sender: FDA-Public Use
  Company Number: US-BAYER-201014293NA

PATIENT
  Age: 19 Year
  Sex: Female
  Weight: 91 kg

DRUGS (7)
  1. YASMIN [Suspect]
     Indication: PRODUCT USED FOR UNKNOWN INDICATION
     Dosage: UNK UNK, UNK
     Route: 048
     Dates: start: 200512, end: 20070515
  2. YAZ [Suspect]
     Indication: PRODUCT USED FOR UNKNOWN INDICATION
     Dosage: UNK
     Route: 048
     Dates: start: 200805, end: 20080615
  3. MOTRIN [Concomitant]
     Dates: start: 2004
  4. ADVIL [Concomitant]
     Dates: start: 2004
  5. AMOXICILLIN [Concomitant]
     Dates: start: 1988
  6. BACTRIM [Concomitant]
     Dates: start: 1988
  7. PRO-AIR [Concomitant]
     Indication: ASTHMA
     Route: 055
     Dates: start: 1992

REACTIONS (11)
  - Cholelithiasis [Unknown]
  - Abdominal pain [Unknown]
  - Abdominal pain upper [Unknown]
  - Pancreatitis [Unknown]
  - Nausea [Unknown]
  - Vomiting [Unknown]
  - Dysuria [Unknown]
  - Pollakiuria [Unknown]
  - Metrorrhagia [None]
  - Coital bleeding [None]
  - Cholecystitis chronic [None]
